FAERS Safety Report 12366487 (Version 1)
Quarter: 2016Q2

REPORT INFORMATION
  Report Type: Spontaneous
  Country: US (occurrence: US)
  Receive Date: 20160513
  Receipt Date: 20160513
  Transmission Date: 20160815
  Serious: Yes (Death, Other)
  Sender: FDA-Public Use
  Company Number: US-ELI_LILLY_AND_COMPANY-US201603004425

PATIENT
  Age: 40 Year
  Sex: Male

DRUGS (1)
  1. ERBITUX [Suspect]
     Active Substance: CETUXIMAB
     Indication: METASTASES TO LYMPH NODES
     Dosage: UNK, UNKNOWN
     Route: 065
     Dates: start: 20141231

REACTIONS (1)
  - Death [Fatal]

NARRATIVE: CASE EVENT DATE: 20151208
